FAERS Safety Report 7606546-7 (Version None)
Quarter: 2011Q3

REPORT INFORMATION
  Report Type: 
  Country: None (occurrence: None)
  Receive Date: 20110713
  Receipt Date: 20110630
  Transmission Date: 20111222
  Serious: Yes (Other)
  Sender: FDA-Public Use
  Company Number: PHHY2011DE59234

PATIENT
  Sex: Male

DRUGS (1)
  1. RASILEZ HCT [Suspect]
     Dosage: UNK UKN, UNK
     Route: 048

REACTIONS (3)
  - ARRHYTHMIA [None]
  - HEADACHE [None]
  - DRUG EFFECT DECREASED [None]
